FAERS Safety Report 22625987 (Version 1)
Quarter: 2023Q2

REPORT INFORMATION
  Report Type: Spontaneous
  Country: None (occurrence: CH)
  Receive Date: 20230621
  Receipt Date: 20230621
  Transmission Date: 20230722
  Serious: Yes (Other)
  Sender: FDA-Public Use
  Company Number: CH-Ascend Therapeutics US, LLC-2142979

PATIENT
  Sex: Female
  Weight: 60 kg

DRUGS (6)
  1. ESTROGEL [Suspect]
     Active Substance: ESTRADIOL
     Indication: Menopausal symptoms
     Route: 062
     Dates: start: 2017
  2. ESTRADIOL [Suspect]
     Active Substance: ESTRADIOL
     Route: 062
     Dates: start: 2017
  3. UTROGESTAN [Suspect]
     Active Substance: PROGESTERONE
     Route: 048
     Dates: start: 2017
  4. UTROGESTAN [Suspect]
     Active Substance: PROGESTERONE
     Route: 048
  5. UTROGESTAN [Suspect]
     Active Substance: PROGESTERONE
     Route: 048
  6. Redormin(VALERIANA OFFICINALIS ROOT, HUMULUS LUPULUS HOPS) [Concomitant]
     Route: 065

REACTIONS (3)
  - Speech disorder [Unknown]
  - Dizziness [Unknown]
  - Off label use [Unknown]

NARRATIVE: CASE EVENT DATE: 20210101
